FAERS Safety Report 8044671-X (Version None)
Quarter: 2012Q1

REPORT INFORMATION
  Report Type: 
  Country: None (occurrence: None)
  Receive Date: 20120113
  Receipt Date: 20120102
  Transmission Date: 20120608
  Serious: Yes (Hospitalization, Other)
  Sender: FDA-Public Use
  Company Number: CA-NOVOPROD-336591

PATIENT

DRUGS (4)
  1. FENOFIBRATE [Concomitant]
     Dosage: 200 MG, QD
     Route: 048
     Dates: start: 20080101
  2. VICTOZA [Suspect]
     Indication: TYPE 2 DIABETES MELLITUS
     Dosage: 0.6 MG, QD
     Route: 058
     Dates: start: 20110816, end: 20110818
  3. LIPITOR [Concomitant]
     Dosage: 10 MG, QD
     Route: 048
     Dates: start: 20020101
  4. METFORMIN HCL [Concomitant]
     Dosage: 500BID 90
     Dates: start: 19900101

REACTIONS (3)
  - PNEUMONIA [None]
  - LIVER FUNCTION TEST ABNORMAL [None]
  - RENAL FAILURE ACUTE [None]
